FAERS Safety Report 9424031 (Version 1)
Quarter: 2013Q3

REPORT INFORMATION
  Report Type: Spontaneous
  Country: US (occurrence: US)
  Receive Date: 20130729
  Receipt Date: 20130729
  Transmission Date: 20140515
  Serious: No
  Sender: FDA-Public Use
  Company Number: US-B.I. PHARMACEUTICALS,INC./RIDGEFIELD-2013-BI-21688BP

PATIENT
  Age: 89 Year
  Sex: Female
  Weight: 57 kg

DRUGS (2)
  1. COMBIVENT [Suspect]
     Indication: CHRONIC OBSTRUCTIVE PULMONARY DISEASE
     Dosage: STRENGTH: 20 MCG / 100 MCG; DAILY DOSE: 160 MCG/800 MCG
     Route: 055
     Dates: start: 20130601
  2. COMBIVENT CFC [Concomitant]
     Indication: CHRONIC OBSTRUCTIVE PULMONARY DISEASE
     Dosage: (INHALATION AEROSOL) STRENGTH: 18 MCG/103 MCG; DAILY DOSE: 144 MCG/824 MCG
     Route: 055
     Dates: start: 2008, end: 20130531

REACTIONS (1)
  - Overdose [Unknown]
